FAERS Safety Report 8438374-7 (Version None)
Quarter: 2012Q2

REPORT INFORMATION
  Report Type: 
  Country: None (occurrence: None)
  Receive Date: 20120614
  Receipt Date: 20120604
  Transmission Date: 20120825
  Serious: Yes (Hospitalization)
  Sender: FDA-Public Use
  Company Number: ES-MERCK-1206ESP00007

PATIENT
  Age: 69 Year
  Sex: Male

DRUGS (3)
  1. CANCIDAS [Suspect]
     Indication: CANDIDIASIS
     Route: 041
     Dates: start: 20090626, end: 20090626
  2. CANCIDAS [Suspect]
     Route: 041
     Dates: start: 20090627, end: 20090725
  3. CANCIDAS [Suspect]
     Route: 041
     Dates: start: 20090801, end: 20090901

REACTIONS (2)
  - TREATMENT FAILURE [None]
  - DRUG RESISTANCE [None]
